FAERS Safety Report 10535002 (Version 3)
Quarter: 2014Q4

REPORT INFORMATION
  Report Type: Spontaneous
  Country: JP (occurrence: JP)
  Receive Date: 20141022
  Receipt Date: 20141114
  Transmission Date: 20150529
  Serious: Yes (Other)
  Sender: FDA-Public Use
  Company Number: JP-PFIZER INC-2014288074

PATIENT
  Age: 29 Year
  Sex: Male

DRUGS (2)
  1. LOBU OHARA [Suspect]
     Active Substance: LOXOPROFEN SODIUM
     Indication: ANALGESIC THERAPY
     Dosage: 60 MG, 1 TO 3 TIMES DAILY
     Route: 048
     Dates: start: 20140519, end: 20141013
  2. LYRICA [Suspect]
     Active Substance: PREGABALIN
     Indication: ANALGESIC THERAPY
     Dosage: 25MG CAPSULE, 25 TO 50 MG, 1X/DAY
     Route: 048
     Dates: start: 20140927, end: 20141013

REACTIONS (2)
  - Liver disorder [Recovered/Resolved]
  - Rhabdomyolysis [Recovered/Resolved]

NARRATIVE: CASE EVENT DATE: 20141011
